FAERS Safety Report 15060850 (Version 1)
Quarter: 2018Q2

REPORT INFORMATION
  Report Type: Spontaneous
  Country: DE (occurrence: DE)
  Receive Date: 20180625
  Receipt Date: 20180625
  Transmission Date: 20180711
  Serious: Yes (Death)
  Sender: FDA-Public Use
  Company Number: DE-PFIZER INC-2018253461

PATIENT
  Age: 69 Year
  Sex: Male
  Weight: 70 kg

DRUGS (6)
  1. INSULIN [Concomitant]
     Active Substance: INSULIN NOS
  2. ATORVASTATIN [Concomitant]
     Active Substance: ATORVASTATIN
     Route: 048
  3. BISOPROLOL [Concomitant]
     Active Substance: BISOPROLOL
     Dosage: 5 MG, 1X/DAY
     Route: 048
  4. LANTAREL [Suspect]
     Active Substance: METHOTREXATE SODIUM
     Indication: RHEUMATOID ARTHRITIS
     Dosage: 15 MG MILLGRAM(S) EVERY WEEKS
     Route: 048
     Dates: end: 20180420
  5. PANTOZOL [Concomitant]
     Active Substance: PANTOPRAZOLE SODIUM
     Dosage: 40 MG, 1X/DAY, LONG-TERM MEDICATION
     Route: 048
  6. FUROSEMID [Concomitant]
     Active Substance: FUROSEMIDE
     Dosage: DAILY DOSE: 40 MG MILLGRAM(S) EVERY DAYS
     Route: 048

REACTIONS (5)
  - Hepatic failure [Fatal]
  - Pancytopenia [Fatal]
  - Bone marrow failure [Fatal]
  - Cholangitis infective [Fatal]
  - Condition aggravated [Fatal]

NARRATIVE: CASE EVENT DATE: 20180422
